FAERS Safety Report 9464075 (Version 4)
Quarter: 2014Q1

REPORT INFORMATION
  Report Type: Spontaneous
  Country: US (occurrence: US)
  Receive Date: 20130819
  Receipt Date: 20140204
  Transmission Date: 20141002
  Serious: Yes (Hospitalization, Other)
  Sender: FDA-Public Use
  Company Number: US-INCYTE CORPORATION-2013IN001832

PATIENT
  Age: 64 Year
  Sex: Male
  Weight: 111.1 kg

DRUGS (7)
  1. JAKAFI [Suspect]
     Indication: MYELOFIBROSIS
     Dosage: 5 MG, BID
     Route: 048
     Dates: start: 20120208, end: 20130801
  2. JAKAFI [Suspect]
     Dosage: 5 MG, QD
     Route: 048
     Dates: end: 20130801
  3. GLIMEPIRIDE [Concomitant]
  4. COLCHICINE [Concomitant]
  5. PREDNISONE [Concomitant]
  6. FENTANYL                           /00174602/ [Concomitant]
  7. PERCOCET                           /00446701/ [Concomitant]

REACTIONS (4)
  - Renal failure [Recovering/Resolving]
  - Nephrolithiasis [Recovering/Resolving]
  - Hypovolaemia [Recovering/Resolving]
  - Haemoglobin decreased [Not Recovered/Not Resolved]
